FAERS Safety Report 24193095 (Version 1)
Quarter: 2024Q3

REPORT INFORMATION
  Report Type: Spontaneous
  Country: BR (occurrence: BR)
  Receive Date: 20240809
  Receipt Date: 20240809
  Transmission Date: 20241016
  Serious: Yes (Hospitalization, Other)
  Sender: CELLTRION
  Company Number: BR-CELLTRION INC.-2024BR018777

PATIENT

DRUGS (2)
  1. INFLIXIMAB [Suspect]
     Active Substance: INFLIXIMAB
     Indication: Crohn^s disease
     Dosage: 6 AMPOULES EVERY 8 WEEKS
     Route: 042
     Dates: start: 2019, end: 202405
  2. AZATHIOPRINE [Concomitant]
     Active Substance: AZATHIOPRINE
     Dosage: PATIENT ALSO STOPPED USING AZATHIOPRINE BECAUSE OF THE ADVERSE REACTION

REACTIONS (5)
  - Chylothorax [Not Recovered/Not Resolved]
  - Primary amyloidosis [Not Recovered/Not Resolved]
  - Lymphoma [Not Recovered/Not Resolved]
  - Pleural effusion [Recovered/Resolved]
  - Lymphadenopathy [Not Recovered/Not Resolved]

NARRATIVE: CASE EVENT DATE: 20240101
